FAERS Safety Report 9460091 (Version 2)
Quarter: 2013Q3

REPORT INFORMATION
  Report Type: Spontaneous
  Country: US (occurrence: US)
  Receive Date: 20130815
  Receipt Date: 20130920
  Transmission Date: 20140515
  Serious: Yes (Life-Threatening, Hospitalization, Other)
  Sender: FDA-Public Use
  Company Number: PHEH2013US017196

PATIENT
  Age: 65 Year
  Sex: Female
  Weight: 107.3 kg

DRUGS (16)
  1. DIOVAN [Suspect]
     Indication: HYPERTENSION
     Dosage: 160 MG, BID
     Route: 048
     Dates: start: 2000
  2. TOPROL [Concomitant]
     Indication: CARDIAC DISORDER
     Dosage: 1 DF, (100 MG) PER DAY
     Route: 048
  3. LASIX [Concomitant]
     Indication: DIURETIC THERAPY
     Dosage: 2 DF, (40 MG) PER DAY
     Route: 048
  4. SYNTHROID [Concomitant]
     Indication: THYROID DISORDER
     Dosage: 1 DF, (50 UG) PER DAY
     Route: 048
  5. COLCRYS [Concomitant]
     Indication: GOUT
     Dosage: 1 DF, PER DAY
     Route: 048
  6. CRESTOR [Concomitant]
     Indication: BLOOD CHOLESTEROL ABNORMAL
     Dosage: 1 DF, (40 MG) PER DAY
     Route: 048
  7. ASPIRIN [Concomitant]
     Indication: PROPHYLAXIS
     Dosage: 325 MG, DAILY
     Route: 048
  8. NORVASC [Concomitant]
     Indication: CARDIAC DISORDER
     Dosage: 5 MG, DAILY
     Route: 048
  9. ADVAIR [Concomitant]
     Indication: ASTHMA
     Dosage: 1 DF (250 UG-50 UG/DOSE), BID
  10. COMBIVENT [Concomitant]
     Indication: ASTHMA
     Dosage: UNK UKN, UNK
     Route: 048
  11. NEXIUM//ESOMEPRAZOLE MAGNESIUM [Concomitant]
     Indication: GASTROOESOPHAGEAL REFLUX DISEASE
     Dosage: 40 MG, DAILY (EVERY MORNING)
     Route: 048
  12. POTASSIUM CHLORIDE [Concomitant]
     Dosage: UNK UKN, UNK
  13. HYDROXYZINE [Concomitant]
     Dosage: 1 DF (10 MG), TID
  14. COZAAR [Concomitant]
     Dosage: 100 MG, DAILY
     Route: 048
  15. KLOR-CON [Concomitant]
     Dosage: 1 DF, BID (WITH FOOD)
     Route: 048
  16. CEFTIN//CEFATRIZINE PROPYLENEGLYCOLATE [Concomitant]
     Dosage: 1 DF, Q12H
     Route: 048

REACTIONS (2)
  - Atrioventricular block [Recovered/Resolved with Sequelae]
  - Headache [Not Recovered/Not Resolved]
